FAERS Safety Report 4277020-3 (Version None)
Quarter: 2004Q1

REPORT INFORMATION
  Report Type: 
  Country: None (occurrence: None)
  Receive Date: 20040120
  Receipt Date: 20040109
  Transmission Date: 20041129
  Serious: Yes (Hospitalization)
  Sender: FDA-Public Use
  Company Number: STA-AE-04-MTX-010

PATIENT
  Age: 76 Year
  Sex: Female

DRUGS (3)
  1. NOVATREX (METHOTREXATE, TABLET,0) [Suspect]
     Indication: RHEUMATOID ARTHRITIS
     Dosage: 15 MG 1X PER 1 WK; ORAL
     Route: 048
     Dates: start: 20011015, end: 20031012
  2. EFFEXOR [Concomitant]
  3. MULTIVITAMIN [Concomitant]

REACTIONS (5)
  - GENERAL PHYSICAL HEALTH DETERIORATION [None]
  - LEUKOPENIA [None]
  - NEUTROPENIA [None]
  - PYREXIA [None]
  - THROMBOCYTOPENIA [None]
